FAERS Safety Report 4543902-8 (Version None)
Quarter: 2005Q1

REPORT INFORMATION
  Report Type: 
  Country: None (occurrence: None)
  Receive Date: 20050103
  Receipt Date: 20041115
  Transmission Date: 20050727
  Serious: Yes (Other)
  Sender: FDA-Public Use
  Company Number: PHFR2004GB04255

PATIENT
  Age: 74 Year
  Sex: Male

DRUGS (8)
  1. RIFAMPICIN [Suspect]
     Indication: ARTHRITIS INFECTIVE
     Dosage: 1200 MG/DAY, ORAL
     Route: 048
     Dates: start: 20040922, end: 20041029
  2. ALBUTEROL [Concomitant]
  3. IPATROPIUM BROMIDE [Concomitant]
  4. FUROSEMIDE [Concomitant]
  5. INSULIN [Concomitant]
  6. FLUCLOXACILLIN [Concomitant]
  7. ACETAMINOPHEN [Concomitant]
  8. DANAPAROID SODIUM (DANAPAROID SODIUM) [Concomitant]

REACTIONS (1)
  - RED MAN SYNDROME [None]
